FAERS Safety Report 8328792-X (Version None)
Quarter: 2012Q2

REPORT INFORMATION
  Report Type: 
  Country: None (occurrence: None)
  Receive Date: 20120502
  Receipt Date: 20120424
  Transmission Date: 20120825
  Serious: Yes (Hospitalization)
  Sender: FDA-Public Use
  Company Number: DE-ELI_LILLY_AND_COMPANY-DE201203004512

PATIENT
  Age: 82 Year
  Sex: Male

DRUGS (6)
  1. ASPIRIN [Concomitant]
     Dosage: 100 DF, QD
  2. EFFIENT [Suspect]
     Indication: ANGINA PECTORIS
     Dosage: 10 MG, QD
  3. SIMVA [Concomitant]
     Dosage: 5 DF, QD
  4. EFFIENT [Suspect]
     Dosage: 5 MG, QD
  5. PANTOPRAZOLE [Concomitant]
     Dosage: 20 DF, QD
  6. LOSARTAN/HYDROCHLOORTHIAZIDE [Concomitant]
     Dosage: 100/12.5 BID

REACTIONS (5)
  - ANGIODYSPLASIA [None]
  - IRON DEFICIENCY ANAEMIA [None]
  - INTESTINAL HAEMORRHAGE [None]
  - OVERDOSE [None]
  - OFF LABEL USE [None]
